FAERS Safety Report 16541582 (Version 1)
Quarter: 2019Q3

REPORT INFORMATION
  Report Type: Spontaneous
  Country: AR (occurrence: AR)
  Receive Date: 20190708
  Receipt Date: 20190708
  Transmission Date: 20191004
  Serious: Yes (Hospitalization)
  Sender: FDA-Public Use
  Company Number: AR-MYLANLABS-2019M1063207

PATIENT
  Age: 77 Year
  Sex: Female

DRUGS (1)
  1. LAPENAX [Suspect]
     Active Substance: CLOZAPINE
     Indication: PRODUCT USED FOR UNKNOWN INDICATION
     Dosage: UNK
     Dates: start: 20180912

REACTIONS (2)
  - Red blood cell count decreased [Unknown]
  - Wrist fracture [Unknown]

NARRATIVE: CASE EVENT DATE: 201906
